FAERS Safety Report 8889212 (Version 1)
Quarter: 2012Q4

REPORT INFORMATION
  Report Type: 
  Country: US (occurrence: US)
  Receive Date: 20121106
  Receipt Date: 20121106
  Transmission Date: 20130627
  Serious: No
  Sender: FDA-Public Use
  Company Number: US-BAUSCH-2012BL001542

PATIENT
  Age: 83 Year
  Sex: Female

DRUGS (9)
  1. NEOMYCIN AND POLYMYXIN B SULFATES AND DEXAMETHASONE OPHTHALMIC SUSPENS [Suspect]
     Indication: POSTOPERATIVE CARE
     Route: 047
     Dates: start: 20120302
  2. LATANOPROST [Concomitant]
     Indication: GLAUCOMA
     Route: 047
  3. HYDROCHLOROTHIAZIDE [Concomitant]
     Indication: HYPERTENSION
     Route: 048
  4. HYDRALAZINE [Concomitant]
     Indication: HYPERTENSION
     Route: 048
  5. PRAMIPEXOLE [Concomitant]
     Indication: RESTLESS LEGS SYNDROME
     Route: 048
  6. CITRACAL [Concomitant]
  7. OSTEODENX [Concomitant]
  8. FISH OIL [Concomitant]
  9. IMMUNITY [Concomitant]

REACTIONS (2)
  - Xanthopsia [Not Recovered/Not Resolved]
  - Chromaturia [Not Recovered/Not Resolved]
